FAERS Safety Report 14012457 (Version 1)
Quarter: 2017Q3

REPORT INFORMATION
  Report Type: Spontaneous
  Country: None (occurrence: US)
  Receive Date: 20170926
  Receipt Date: 20170926
  Transmission Date: 20171128
  Serious: No
  Sender: FDA-Public Use
  Company Number: US-LYNE LABORATORIES INC.-2027735

PATIENT
  Sex: Female

DRUGS (1)
  1. CLINDAMYCIN PALMITATE HYDROCHLORIDE (PEDIATRIC) [Suspect]
     Active Substance: CLINDAMYCIN PALMITATE HYDROCHLORIDE
     Route: 048
     Dates: start: 20161221, end: 20161228

REACTIONS (3)
  - Urticaria [Unknown]
  - Skin discolouration [Unknown]
  - Eye disorder [Recovered/Resolved]

NARRATIVE: CASE EVENT DATE: 20161221
